FAERS Safety Report 21194442 (Version 1)
Quarter: 2022Q3

REPORT INFORMATION
  Report Type: Spontaneous
  Country: IR (occurrence: IR)
  Receive Date: 20220810
  Receipt Date: 20220810
  Transmission Date: 20221027
  Serious: Yes (Life-Threatening, Hospitalization, Other)
  Sender: FDA-Public Use
  Company Number: IR-MLMSERVICE-20220728-3700355-2

PATIENT
  Age: 4 Year
  Sex: Male

DRUGS (5)
  1. ETOPOSIDE [Suspect]
     Active Substance: ETOPOSIDE
     Indication: Acute myelomonocytic leukaemia
     Dosage: 100 MG/M^2 PER DAY ON DAYS 1, 2, 3, 4
  2. METHOTREXATE [Suspect]
     Active Substance: METHOTREXATE
     Indication: Acute myelomonocytic leukaemia
     Route: 037
  3. HYDROCORTISONE [Suspect]
     Active Substance: HYDROCORTISONE
     Indication: Acute myelomonocytic leukaemia
     Route: 037
  4. CYTARABINE [Suspect]
     Active Substance: CYTARABINE
     Indication: Acute myelomonocytic leukaemia
     Route: 037
  5. CYTARABINE [Suspect]
     Active Substance: CYTARABINE
     Indication: Acute myelomonocytic leukaemia
     Dosage: 2 G/M^2 EVERY 12 HOURS AS A 2-HOUR IV INFUSION ON DAYS 1, 2, AND 3, 12 G/M^2

REACTIONS (1)
  - Venoocclusive liver disease [Recovered/Resolved]
